FAERS Safety Report 9801869 (Version 1)
Quarter: 2014Q1

REPORT INFORMATION
  Report Type: Spontaneous
  Country: US (occurrence: US)
  Receive Date: 20140107
  Receipt Date: 20140107
  Transmission Date: 20141002
  Serious: Yes (Death)
  Sender: FDA-Public Use
  Company Number: US-UCBSA-107920

PATIENT
  Age: 47 Year
  Sex: Female

DRUGS (9)
  1. ACETAMINOPHEN/HYDROCODONE [Suspect]
  2. ALPRAZOLAM [Suspect]
  3. METHAMPHETAMINE [Suspect]
  4. CITALOPRAM [Suspect]
  5. BUPROPION [Suspect]
  6. VENLAFAXINE [Suspect]
  7. CARBAMAZEPINE [Suspect]
  8. DOXYLAMINE [Suspect]
  9. TRAMADOL [Suspect]

REACTIONS (1)
  - Toxicity to various agents [Fatal]
